FAERS Safety Report 7901613-2 (Version None)
Quarter: 2011Q4

REPORT INFORMATION
  Report Type: 
  Country: None (occurrence: None)
  Receive Date: 20111104
  Receipt Date: 20111021
  Transmission Date: 20120403
  Serious: Yes (Other)
  Sender: FDA-Public Use
  Company Number: 2011-4279

PATIENT
  Age: 64 Year
  Sex: Female
  Weight: 74 kg

DRUGS (8)
  1. SOMATULINE DEPOT [Suspect]
     Indication: ACROMEGALY
     Dosage: 120 MG (120 MG, 1 IN 28 D), SUBCUTANEOUS
     Route: 058
     Dates: start: 20100401
  2. CABERGOLINE [Concomitant]
  3. METFORMIN HCL [Concomitant]
  4. VENLAFAXINE [Concomitant]
  5. LISINOPRIL/HCTZ (PRINZIDE/00977901/) [Concomitant]
  6. AMLODIPINE [Concomitant]
  7. SIMVASTATIN [Concomitant]
  8. METOPROLOL TARTRATE [Concomitant]

REACTIONS (6)
  - ASTHENIA [None]
  - ABDOMINAL DISTENSION [None]
  - ENDOMETRIAL HYPERPLASIA [None]
  - FLATULENCE [None]
  - FLUSHING [None]
  - MASS [None]
